FAERS Safety Report 9657022 (Version 1)
Quarter: 2013Q4

REPORT INFORMATION
  Report Type: Spontaneous
  Country: SE (occurrence: SE)
  Receive Date: 20131030
  Receipt Date: 20131030
  Transmission Date: 20140711
  Serious: Yes (Other)
  Sender: FDA-Public Use
  Company Number: SE-PFIZER INC-2013307174

PATIENT
  Sex: Male

DRUGS (1)
  1. LYRICA [Suspect]
     Dosage: ONES OR TWICE 2 TIME 2 TABLETS LYRICA 300

REACTIONS (2)
  - Overdose [Unknown]
  - Schizophrenia [Unknown]
